FAERS Safety Report 5258558-9 (Version None)
Quarter: 2007Q1

REPORT INFORMATION
  Report Type: 
  Country: None (occurrence: None)
  Receive Date: 20070305
  Receipt Date: 20070223
  Transmission Date: 20070707
  Serious: Yes (Other)
  Sender: FDA-Public Use
  Company Number: 2006SP007731

PATIENT
  Age: 56 Year
  Sex: Male
  Weight: 65 kg

DRUGS (7)
  1. TEMODAL [Suspect]
     Indication: GLIOBLASTOMA MULTIFORME
     Dosage: SEE IMAGE
     Route: 048
     Dates: start: 20061030, end: 20061122
  2. TEMODAL [Suspect]
     Indication: GLIOBLASTOMA MULTIFORME
     Dosage: SEE IMAGE
     Route: 048
     Dates: start: 20070110
  3. NAVOBAN [Concomitant]
  4. GASTER D [Concomitant]
  5. DEPAKENE [Concomitant]
  6. RADIOTHERAPY [Concomitant]
  7. HYDANTOL [Concomitant]

REACTIONS (4)
  - ALANINE AMINOTRANSFERASE INCREASED [None]
  - ASPARTATE AMINOTRANSFERASE INCREASED [None]
  - HEPATIC FUNCTION ABNORMAL [None]
  - PERFORMANCE STATUS DECREASED [None]
